FAERS Safety Report 17121302 (Version 1)
Quarter: 2019Q4

REPORT INFORMATION
  Report Type: Spontaneous
  Country: US (occurrence: US)
  Receive Date: 20191205
  Receipt Date: 20191205
  Transmission Date: 20200122
  Serious: Yes (Other)
  Sender: FDA-Public Use
  Company Number: None

PATIENT
  Age: 60 Year
  Sex: Female
  Weight: 60 kg

DRUGS (2)
  1. AVASTIN [Suspect]
     Active Substance: BEVACIZUMAB
     Indication: COLON CANCER
     Dosage: ?          OTHER FREQUENCY:EVERY 14 DAYS;?
     Route: 041
     Dates: start: 20190724, end: 20191005
  2. OXALIPLATIN. [Concomitant]
     Active Substance: OXALIPLATIN
     Dates: start: 20190724, end: 20191005

REACTIONS (9)
  - Capillary leak syndrome [None]
  - Therapy cessation [None]
  - Ear pain [None]
  - Fluid overload [None]
  - Dyspnoea [None]
  - Peripheral swelling [None]
  - Cough [None]
  - Lung infiltration [None]
  - Device malfunction [None]

NARRATIVE: CASE EVENT DATE: 20190904
